FAERS Safety Report 5608940-2 (Version None)
Quarter: 2008Q1

REPORT INFORMATION
  Report Type: 
  Country: None (occurrence: None)
  Receive Date: 20080129
  Receipt Date: 20080129
  Transmission Date: 20080703
  Serious: Yes (Other)
  Sender: FDA-Public Use
  Company Number: None

PATIENT
  Age: 33 Year
  Sex: Male
  Weight: 86.1834 kg

DRUGS (1)
  1. CHANTIX [Suspect]
     Indication: SMOKING CESSATION THERAPY
     Dates: start: 20080104, end: 20080107

REACTIONS (5)
  - ANGER [None]
  - ANXIETY [None]
  - MOOD ALTERED [None]
  - SMOKER [None]
  - VISION BLURRED [None]
